FAERS Safety Report 5293341-X (Version None)
Quarter: 2007Q2

REPORT INFORMATION
  Report Type: 
  Country: None (occurrence: None)
  Receive Date: 20070411
  Receipt Date: 20070330
  Transmission Date: 20071010
  Serious: Yes (Hospitalization)
  Sender: FDA-Public Use
  Company Number: US-MERCK-0704USA01127

PATIENT
  Age: 80 Year
  Sex: Male

DRUGS (15)
  1. ZOCOR [Suspect]
     Route: 065
     Dates: end: 20031101
  2. PRINIVIL [Concomitant]
     Route: 065
  3. COREG [Concomitant]
     Route: 065
  4. LORTAB [Concomitant]
     Route: 065
  5. MORPHINE [Concomitant]
     Route: 065
  6. COUMADIN [Concomitant]
     Route: 065
  7. ALDACTONE [Concomitant]
     Route: 065
  8. LASIX [Concomitant]
     Route: 065
  9. DIGOXIN SEMI [Concomitant]
     Route: 065
  10. NEURONTIN [Concomitant]
     Route: 065
  11. PROCRIT [Concomitant]
     Route: 065
  12. ULTRAM [Concomitant]
     Route: 065
  13. TYLENOL [Concomitant]
     Route: 065
  14. PREDNISONE [Concomitant]
     Route: 065
  15. ASPIRIN [Concomitant]
     Route: 065

REACTIONS (5)
  - ANAEMIA [None]
  - CERVICAL SPINAL STENOSIS [None]
  - NECK PAIN [None]
  - PNEUMONIA [None]
  - POLYMYALGIA RHEUMATICA [None]
